FAERS Safety Report 7254736 (Version 3)
Quarter: 2012Q4

REPORT INFORMATION
  Report Type: Report from Study
  Country: GB (occurrence: US)
  Receive Date: 20100125
  Receipt Date: 20121212
  Transmission Date: 20130627
  Serious: Yes (Hospitalization)
  Sender: FDA-Public Use
  Company Number: US-ELI_LILLY_AND_COMPANY-US201001003679

PATIENT
  Age: 80 Year
  Sex: Male
  Weight: 84.17 kg

DRUGS (3)
  1. PEMETREXED [Suspect]
     Indication: NON-SMALL CELL LUNG CANCER
     Dosage: 500 mg/m2, 1 in 21 D
     Route: 042
     Dates: start: 20091119
  2. CARBOPLATIN [Suspect]
     Indication: NON-SMALL CELL LUNG CANCER
     Dosage: 5 D/F, 1 in 21 D
     Route: 042
     Dates: start: 20091119
  3. BEVACIZUMAB [Suspect]
     Indication: NON-SMALL CELL LUNG CANCER
     Dosage: 15 mg/kg, 1 in 21D
     Route: 042
     Dates: start: 20091119

REACTIONS (5)
  - Sepsis [Unknown]
  - Multi-organ failure [Unknown]
  - Pyrexia [Unknown]
  - Pneumonia [Unknown]
  - Cardiac failure congestive [Unknown]
